FAERS Safety Report 7899628-6 (Version None)
Quarter: 2011Q4

REPORT INFORMATION
  Report Type: 
  Country: None (occurrence: None)
  Receive Date: 20111107
  Receipt Date: 20110916
  Transmission Date: 20120403
  Serious: No
  Sender: FDA-Public Use
  Company Number: US-AMGEN-USASP2011047916

PATIENT
  Sex: Female

DRUGS (3)
  1. METHOTREXATE [Concomitant]
     Dosage: 4 MG, UNK
     Dates: start: 20101130
  2. PLAQUENIL [Concomitant]
     Dosage: 1 MG, UNK
     Dates: start: 20101201
  3. ENBREL [Suspect]
     Indication: RHEUMATOID ARTHRITIS
     Dosage: 50 MG, QWK
     Dates: start: 20110601, end: 20110801

REACTIONS (3)
  - FATIGUE [None]
  - INFECTION [None]
  - RHEUMATOID ARTHRITIS [None]
